FAERS Safety Report 5599394-3 (Version None)
Quarter: 2008Q1

REPORT INFORMATION
  Report Type: 
  Country: None (occurrence: None)
  Receive Date: 20080122
  Receipt Date: 20080114
  Transmission Date: 20080703
  Serious: Yes (Other)
  Sender: FDA-Public Use
  Company Number: BR-PFIZER INC-2008004925

PATIENT
  Sex: Female
  Weight: 44 kg

DRUGS (2)
  1. DEPO-PROVERA SUSPENSION/INJ [Suspect]
     Indication: CONTRACEPTION
     Dosage: FREQ:FIRST INJECTION, FIRST CYCLE
     Dates: start: 20030101, end: 20030101
  2. DEPO-PROVERA SUSPENSION/INJ [Suspect]
     Dosage: FREQ:FIRST INJECTION, SECOND CYCLE
     Dates: start: 20071101, end: 20071101

REACTIONS (5)
  - ABORTION SPONTANEOUS [None]
  - DRUG INEFFECTIVE [None]
  - PAPILLOMA VIRAL INFECTION [None]
  - UNINTENDED PREGNANCY [None]
  - VAGINAL HAEMORRHAGE [None]
